FAERS Safety Report 9129444 (Version 1)
Quarter: 2013Q1

REPORT INFORMATION
  Report Type: Report from Study
  Country: US (occurrence: US)
  Receive Date: 20130228
  Receipt Date: 20130228
  Transmission Date: 20140127
  Serious: Yes (Hospitalization)
  Sender: FDA-Public Use
  Company Number: US-GLAXOSMITHKLINE-A1011307A

PATIENT
  Age: 69 Year
  Sex: Female
  Weight: 33.1 kg

DRUGS (6)
  1. PAZOPANIB [Suspect]
     Indication: THYROID CANCER
     Dosage: 800MG PER DAY
     Route: 048
     Dates: start: 20130110
  2. TRAMETINIB [Suspect]
     Indication: THYROID CANCER
     Dosage: 2MG PER DAY
     Route: 048
  3. LOMOTIL [Concomitant]
     Indication: DIARRHOEA
     Dates: start: 20130203
  4. IMODIUM [Concomitant]
     Indication: DIARRHOEA
     Dates: start: 20130203
  5. BUDESONIDE [Concomitant]
     Indication: DIARRHOEA
     Dates: start: 20130203
  6. FRAGMIN [Concomitant]
     Indication: PULMONARY EMBOLISM

REACTIONS (2)
  - Diarrhoea [Recovered/Resolved]
  - Colitis [Unknown]
